FAERS Safety Report 6722977-1 (Version None)
Quarter: 2010Q2

REPORT INFORMATION
  Report Type: 
  Country: None (occurrence: None)
  Receive Date: 20100513
  Receipt Date: 20100423
  Transmission Date: 20101027
  Serious: No
  Sender: FDA-Public Use
  Company Number: US-BIOGENIDEC-2010BI010983

PATIENT
  Age: 58 Year
  Sex: Female

DRUGS (1)
  1. TYSABRI [Suspect]
     Indication: MULTIPLE SCLEROSIS
     Route: 042
     Dates: start: 20070821, end: 20100101

REACTIONS (5)
  - ASTHENIA [None]
  - ATAXIA [None]
  - CENTRAL NERVOUS SYSTEM LESION [None]
  - DIPLOPIA [None]
  - GAIT DISTURBANCE [None]
